FAERS Safety Report 4917949-3 (Version None)
Quarter: 2006Q1

REPORT INFORMATION
  Report Type: 
  Country: None (occurrence: None)
  Receive Date: 20060221
  Receipt Date: 20051014
  Transmission Date: 20060701
  Serious: Yes (Hospitalization, Other)
  Sender: FDA-Public Use
  Company Number: US-MERCK-0510USA07543

PATIENT
  Age: 58 Year
  Sex: Male
  Weight: 91 kg

DRUGS (7)
  1. VIOXX [Suspect]
     Indication: OSTEOARTHRITIS
     Route: 048
     Dates: start: 20000306, end: 20041015
  2. ASPIRIN [Concomitant]
     Route: 065
     Dates: start: 19980101
  3. ASPIRIN [Concomitant]
     Route: 065
     Dates: start: 19980101
  4. HYDRODIURIL [Concomitant]
     Route: 065
     Dates: start: 19950101, end: 20050101
  5. LIPITOR [Concomitant]
     Route: 065
  6. METFORMIN [Concomitant]
     Route: 065
  7. VERELAN [Concomitant]
     Route: 065
     Dates: start: 19950101, end: 20030101

REACTIONS (5)
  - ANGINA PECTORIS [None]
  - CORONARY ARTERY DISEASE [None]
  - GLAUCOMA [None]
  - HEART RATE IRREGULAR [None]
  - MYOCARDIAL INFARCTION [None]
